FAERS Safety Report 20006515 (Version 1)
Quarter: 2021Q4

REPORT INFORMATION
  Report Type: Report from Study
  Country: BR (occurrence: BR)
  Receive Date: 20211028
  Receipt Date: 20211028
  Transmission Date: 20220303
  Serious: Yes (Hospitalization)
  Sender: FDA-Public Use
  Company Number: BR-NOVARTISPH-NVSC2021BR196778

PATIENT
  Age: 63 Year
  Sex: Male

DRUGS (2)
  1. COSENTYX [Suspect]
     Active Substance: SECUKINUMAB
     Indication: Ankylosing spondylitis
     Dosage: UNK (ATTACK DOSES)
     Route: 065
     Dates: start: 20210804
  2. COSENTYX [Suspect]
     Active Substance: SECUKINUMAB
     Dosage: UNK (PERFORMED THIRD LOADING DOSE OF COSENTYX)
     Route: 065
     Dates: start: 20210817

REACTIONS (5)
  - Cough [Recovering/Resolving]
  - Secretion discharge [Recovering/Resolving]
  - Pain [Unknown]
  - Nervous system disorder [Unknown]
  - Rheumatic disorder [Unknown]

NARRATIVE: CASE EVENT DATE: 20211018
